FAERS Safety Report 13176454 (Version 7)
Quarter: 2018Q1

REPORT INFORMATION
  Report Type: Report from Study
  Country: CN (occurrence: CN)
  Receive Date: 20170201
  Receipt Date: 20180321
  Transmission Date: 20180508
  Serious: Yes (Hospitalization)
  Sender: FDA-Public Use
  Company Number: PHHY2016CN162957

PATIENT
  Age: 28 Year
  Sex: Female
  Weight: 76 kg

DRUGS (7)
  1. CAPECITABINE. [Concomitant]
     Active Substance: CAPECITABINE
     Indication: PRODUCT USED FOR UNKNOWN INDICATION
     Dosage: UNK UNK, BID
     Route: 065
  2. XELODA [Suspect]
     Active Substance: CAPECITABINE
     Dosage: 6 DF, BID
     Route: 048
     Dates: start: 201701, end: 201705
  3. TYKERB [Suspect]
     Active Substance: LAPATINIB DITOSYLATE
     Indication: BREAST CANCER
     Dosage: 1000 MG, QD
     Route: 048
     Dates: start: 20150525, end: 20161230
  4. XELODA [Suspect]
     Active Substance: CAPECITABINE
     Indication: BREAST CANCER
     Dosage: 6 DF, BID
     Route: 048
     Dates: start: 20150525, end: 20161230
  5. ACETAMINOPHEN. [Concomitant]
     Active Substance: ACETAMINOPHEN
     Indication: PRODUCT USED FOR UNKNOWN INDICATION
     Route: 065
  6. TYKERB [Suspect]
     Active Substance: LAPATINIB DITOSYLATE
     Dosage: 1000 MG, QD (4 DF QD)
     Route: 048
     Dates: start: 201701, end: 201705
  7. HERCEPTIN [Concomitant]
     Active Substance: TRASTUZUMAB
     Indication: NEOPLASM
     Dosage: 6 MG/KG, UNK (ONCE PER 21 DAYS)
     Route: 042
     Dates: start: 20141124

REACTIONS (23)
  - Malaise [Unknown]
  - Palmar-plantar erythrodysaesthesia syndrome [Not Recovered/Not Resolved]
  - Diarrhoea [Recovered/Resolved]
  - Paronychia [Recovering/Resolving]
  - Dyspepsia [Recovered/Resolved]
  - Blister [Recovered/Resolved]
  - White blood cell count decreased [Unknown]
  - Pyrexia [Recovering/Resolving]
  - Rash vesicular [Unknown]
  - Headache [Unknown]
  - Nail bed bleeding [Unknown]
  - Pain [Unknown]
  - Flushing [Recovered/Resolved]
  - Regurgitation [Unknown]
  - Platelet count decreased [Unknown]
  - Erythema [Recovering/Resolving]
  - Electrolyte imbalance [Unknown]
  - Rash [Recovered/Resolved]
  - Varicella [Recovered/Resolved]
  - Skin exfoliation [Unknown]
  - Pruritus [Unknown]
  - Mouth ulceration [Recovered/Resolved]
  - Onychoclasis [Unknown]

NARRATIVE: CASE EVENT DATE: 201505
